FAERS Safety Report 5136239-X (Version None)
Quarter: 2006Q4

REPORT INFORMATION
  Report Type: 
  Country: None (occurrence: None)
  Receive Date: 20061027
  Receipt Date: 20061016
  Transmission Date: 20070319
  Serious: Yes (Hospitalization)
  Sender: FDA-Public Use
  Company Number: PHNU2006DE03448

PATIENT
  Sex: Female

DRUGS (4)
  1. SANDIMMUNE [Suspect]
     Indication: RENAL TRANSPLANT
  2. CELLCEPT [Concomitant]
  3. CORTISONE ACETATE [Concomitant]
  4. ANTIRHEUMATIC (INCL.ANTIPHLOGISTICS) [Concomitant]

REACTIONS (8)
  - ARTIFICIAL ANUS [None]
  - CYSTITIS [None]
  - IMPAIRED HEALING [None]
  - INTESTINAL PERFORATION [None]
  - OOPHORECTOMY [None]
  - OVARIAN CANCER [None]
  - PULMONARY EMBOLISM [None]
  - SUTURE RUPTURE [None]
